FAERS Safety Report 6914512-X (Version None)
Quarter: 2010Q3

REPORT INFORMATION
  Report Type: 
  Country: None (occurrence: None)
  Receive Date: 20100809
  Receipt Date: 20100805
  Transmission Date: 20110219
  Serious: Yes (Life-Threatening)
  Sender: FDA-Public Use
  Company Number: US-ASTRAZENECA-2010SE32327

PATIENT
  Age: 62 Year
  Sex: Female

DRUGS (23)
  1. FASLODEX [Suspect]
     Indication: BREAST CANCER METASTATIC
     Route: 030
  2. COZAAR [Concomitant]
     Route: 048
  3. DIGOXIN [Concomitant]
     Route: 048
  4. DIGOXIN [Concomitant]
     Route: 048
     Dates: end: 20100406
  5. GLYBURIDE AND METFORMIN HYDROCHLORIDE [Concomitant]
     Dosage: 2.5/500 MG ONE TABLET TWO TIMES A DAY
     Route: 048
  6. GLYBURIDE AND METFORMIN HYDROCHLORIDE [Concomitant]
     Dosage: 2.5/500 MG
     Route: 048
     Dates: start: 20060526, end: 20100406
  7. OMEPRAZOLE [Concomitant]
     Route: 048
  8. LEVOTHYROXINE SODIUM [Concomitant]
     Route: 048
  9. VITAMIN D [Concomitant]
     Dosage: 2000 UNITS ONE DAILY
     Route: 048
  10. VITAMIN D [Concomitant]
     Route: 048
     Dates: end: 20100406
  11. FLONATE [Concomitant]
     Dosage: 2.5-25-1
     Route: 048
  12. ALPHAGAN [Concomitant]
     Dosage: TID
     Route: 047
  13. SOTALOL HCL [Concomitant]
     Route: 048
     Dates: start: 20070817
  14. FUROSEMIDE [Concomitant]
     Route: 048
  15. POTASSIUM CHLORIDE [Concomitant]
     Route: 048
  16. WARFARIN SODIUM [Concomitant]
     Route: 048
  17. FEXOFENADINE HCL [Concomitant]
     Route: 048
  18. FEXOFENADINE HCL [Concomitant]
     Route: 048
     Dates: end: 20100406
  19. BENICAR [Concomitant]
     Route: 048
  20. FOSAMAX [Concomitant]
     Route: 048
     Dates: start: 20060627, end: 20100406
  21. NEXIUM [Concomitant]
     Route: 048
     Dates: start: 20060526, end: 20100406
  22. COSOPT [Concomitant]
     Dosage: 2-0.5 %
     Route: 047
  23. SYSTANE [Concomitant]
     Dosage: 0.4-0.3 %
     Route: 047
     Dates: start: 20060526, end: 20100406

REACTIONS (4)
  - ANAEMIA [None]
  - COOMBS TEST POSITIVE [None]
  - HAEMOLYTIC ANAEMIA [None]
  - PANCYTOPENIA [None]
